FAERS Safety Report 8913665 (Version 1)
Quarter: 2012Q4

REPORT INFORMATION
  Report Type: 
  Country: JP (occurrence: JP)
  Receive Date: 20121119
  Receipt Date: 20121119
  Transmission Date: 20130627
  Serious: Yes (Other)
  Sender: FDA-Public Use
  Company Number: JP-009507513-1211JPN007076

PATIENT
  Age: 60 Year
  Sex: Male
  Weight: 73 kg

DRUGS (7)
  1. PEGINTRON [Suspect]
     Indication: CHRONIC HEPATITIS C
     Dosage: 1.4 Microgram per kilogram, qw
     Route: 058
     Dates: start: 20120511, end: 20120720
  2. REBETOL [Suspect]
     Indication: CHRONIC HEPATITIS C
     Dosage: 800 mg, qd
     Route: 048
     Dates: start: 20120511, end: 20120727
  3. TELAVIC [Suspect]
     Indication: CHRONIC HEPATITIS C
     Dosage: 2250 mg, qd
     Route: 048
     Dates: start: 20120511, end: 20120605
  4. TELAVIC [Suspect]
     Dosage: 1500 mg, qd
     Route: 048
     Dates: start: 20120606, end: 20120727
  5. UNISIA [Concomitant]
     Indication: HYPERTENSION
     Dosage: 1 DF, qd
     Route: 048
  6. LOXOPROFEN [Concomitant]
     Indication: PROPHYLAXIS
     Dosage: 180 mg, qd
     Route: 048
     Dates: start: 20120511, end: 20120727
  7. XYZAL [Concomitant]
     Indication: PROPHYLAXIS
     Dosage: 5 mg, qd
     Route: 048
     Dates: start: 20120511, end: 20120727

REACTIONS (1)
  - Back pain [Recovering/Resolving]
